FAERS Safety Report 25587910 (Version 2)
Quarter: 2025Q4

REPORT INFORMATION
  Report Type: Report from Study
  Country: US (occurrence: US)
  Receive Date: 20250721
  Receipt Date: 20251125
  Transmission Date: 20260118
  Serious: Yes (Other)
  Sender: ABBVIE
  Company Number: US-ABBVIE-6374952

PATIENT
  Age: 52 Year
  Sex: Female

DRUGS (1)
  1. SKYRIZI [Suspect]
     Active Substance: RISANKIZUMAB-RZAA
     Indication: Psoriasis
     Dosage: STOP DATE: 2025
     Route: 058
     Dates: start: 20250610

REACTIONS (5)
  - Upper limb fracture [Recovered/Resolved]
  - Ovarian cyst [Not Recovered/Not Resolved]
  - Ligament sprain [Unknown]
  - Joint dislocation [Recovering/Resolving]
  - Upper limb fracture [Recovering/Resolving]

NARRATIVE: CASE EVENT DATE: 20250101
